FAERS Safety Report 17359102 (Version 3)
Quarter: 2020Q1

REPORT INFORMATION
  Report Type: Spontaneous
  Country: US (occurrence: US)
  Receive Date: 20200202
  Receipt Date: 20200330
  Transmission Date: 20200409
  Serious: Yes (Hospitalization, Other)
  Sender: FDA-Public Use
  Company Number: US-ABBVIE-20K-163-3258455-00

PATIENT
  Age: 61 Year
  Sex: Female
  Weight: 90.8 kg

DRUGS (19)
  1. HUMIRA [Suspect]
     Active Substance: ADALIMUMAB
     Indication: PSORIATIC ARTHROPATHY
     Route: 058
     Dates: start: 2018, end: 201906
  2. ALBUTEROL. [Concomitant]
     Active Substance: ALBUTEROL
     Indication: ASTHMA
     Route: 065
  3. GABAPENTIN. [Concomitant]
     Active Substance: GABAPENTIN
     Indication: NEUROPATHY PERIPHERAL
     Route: 065
  4. ZANTAC [Concomitant]
     Active Substance: RANITIDINE HYDROCHLORIDE
     Indication: ULCER
  5. HUMIRA [Suspect]
     Active Substance: ADALIMUMAB
     Indication: FIBROMYALGIA
     Route: 058
     Dates: start: 201907, end: 20191201
  6. FOLIC ACID. [Concomitant]
     Active Substance: FOLIC ACID
     Indication: PRODUCT USED FOR UNKNOWN INDICATION
     Route: 065
  7. MELATONIN [Concomitant]
     Active Substance: MELATONIN
     Indication: SLEEP DISORDER
     Route: 065
  8. PANTOPRAZOLE [Concomitant]
     Active Substance: PANTOPRAZOLE
     Indication: ULCER
  9. WELLBUTRIN [Concomitant]
     Active Substance: BUPROPION HYDROCHLORIDE
     Indication: DEPRESSION
     Route: 065
  10. PANTOPRAZOLE [Concomitant]
     Active Substance: PANTOPRAZOLE
     Indication: GASTROOESOPHAGEAL REFLUX DISEASE
     Route: 065
  11. PRAMIPEXOLE. [Concomitant]
     Active Substance: PRAMIPEXOLE
     Indication: RESTLESS LEGS SYNDROME
     Route: 065
  12. ZANTAC [Concomitant]
     Active Substance: RANITIDINE HYDROCHLORIDE
     Indication: GASTROOESOPHAGEAL REFLUX DISEASE
     Route: 065
  13. SEROQUEL XR [Concomitant]
     Active Substance: QUETIAPINE FUMARATE
     Indication: PRODUCT USED FOR UNKNOWN INDICATION
  14. HUMIRA [Suspect]
     Active Substance: ADALIMUMAB
     Indication: PSORIASIS
     Route: 058
     Dates: start: 20200130
  15. BREO ELLIPTA [Concomitant]
     Active Substance: FLUTICASONE FUROATE\VILANTEROL TRIFENATATE
     Indication: ASTHMA
     Route: 065
  16. VITAMIN D [Concomitant]
     Active Substance: VITAMIN D NOS
     Indication: BLOOD CALCIUM DECREASED
     Route: 065
  17. CYMBALTA [Concomitant]
     Active Substance: DULOXETINE HYDROCHLORIDE
     Indication: DEPRESSION
     Route: 065
  18. PRAMIPEXOLE. [Concomitant]
     Active Substance: PRAMIPEXOLE
     Indication: ULCER
  19. PLAQUENIL [Concomitant]
     Active Substance: HYDROXYCHLOROQUINE SULFATE
     Indication: SJOGREN^S SYNDROME
     Route: 065

REACTIONS (12)
  - Spinal laminectomy [Unknown]
  - Arthralgia [Recovered/Resolved]
  - Spinal operation [Recovering/Resolving]
  - Visual impairment [Not Recovered/Not Resolved]
  - Gastric ulcer [Unknown]
  - Back pain [Recovered/Resolved]
  - Hip arthroplasty [Unknown]
  - Gait disturbance [Recovered/Resolved]
  - Arthralgia [Not Recovered/Not Resolved]
  - Spinal fusion surgery [Unknown]
  - Memory impairment [Recovered/Resolved]
  - Spinal stenosis [Unknown]

NARRATIVE: CASE EVENT DATE: 2019
